FAERS Safety Report 5041140-6 (Version None)
Quarter: 2006Q2

REPORT INFORMATION
  Report Type: 
  Country: None (occurrence: None)
  Receive Date: 20060601
  Receipt Date: 20060304
  Transmission Date: 20061013
  Serious: No
  Sender: FDA-Public Use
  Company Number: 2006PV009680

PATIENT
  Age: 67 Year
  Sex: Female
  Weight: 84.8226 kg

DRUGS (4)
  1. BYETTA [Suspect]
     Indication: DIABETES MELLITUS
     Dosage: 5 MCG;BID;SC
     Route: 058
     Dates: start: 20060204
  2. NOVOLOG MIX 70/30 [Concomitant]
  3. LANTUS [Concomitant]
  4. NOVOLG SSI [Concomitant]

REACTIONS (6)
  - ANOREXIA [None]
  - BLOOD GLUCOSE DECREASED [None]
  - FEELING JITTERY [None]
  - NAUSEA [None]
  - TREMOR [None]
  - WEIGHT DECREASED [None]
